FAERS Safety Report 8046517-2 (Version None)
Quarter: 2012Q1

REPORT INFORMATION
  Report Type: 
  Country: None (occurrence: None)
  Receive Date: 20120113
  Receipt Date: 20120103
  Transmission Date: 20120608
  Serious: Yes (Hospitalization)
  Sender: FDA-Public Use
  Company Number: FR-ABBOTT-10P-056-0678874-00

PATIENT
  Sex: Male
  Weight: 65 kg

DRUGS (1)
  1. KALETRA [Suspect]
     Indication: HIV INFECTION
     Route: 048
     Dates: start: 20100315

REACTIONS (2)
  - CYTOLYTIC HEPATITIS [None]
  - DIARRHOEA INFECTIOUS [None]
